FAERS Safety Report 9447951 (Version 1)
Quarter: 2013Q3

REPORT INFORMATION
  Report Type: Spontaneous
  Country: KR (occurrence: None)
  Receive Date: 20130806
  Receipt Date: 20130806
  Transmission Date: 20140515
  Serious: Yes (Hospitalization)
  Sender: FDA-Public Use
  Company Number: 2013P1013749

PATIENT
  Age: 6 Month
  Sex: Female

DRUGS (1)
  1. VALPROATE SODIUM [Suspect]
     Indication: CONVULSION

REACTIONS (8)
  - Status epilepticus [None]
  - Grand mal convulsion [None]
  - Petechiae [None]
  - Pancytopenia [None]
  - Hypogammaglobulinaemia [None]
  - Normochromic normocytic anaemia [None]
  - Iron deficiency anaemia [None]
  - Anticonvulsant drug level above therapeutic [None]
